FAERS Safety Report 10470917 (Version 1)
Quarter: 2014Q3

REPORT INFORMATION
  Report Type: Spontaneous
  Country: FR (occurrence: FR)
  Receive Date: 20140923
  Receipt Date: 20140923
  Transmission Date: 20150326
  Serious: Yes (Hospitalization)
  Sender: FDA-Public Use
  Company Number: FR-ABBVIE-14P-056-1285157-00

PATIENT
  Sex: Male

DRUGS (10)
  1. NORVIR [Suspect]
     Active Substance: RITONAVIR
     Indication: ACQUIRED IMMUNODEFICIENCY SYNDROME
  2. KEPPRA [Concomitant]
     Active Substance: LEVETIRACETAM
     Indication: EPILEPSY
     Route: 048
     Dates: start: 20121229
  3. PYRIMETHAMINE [Concomitant]
     Active Substance: PYRIMETHAMINE
     Route: 048
     Dates: start: 20130116, end: 20130201
  4. PYRIMETHAMINE [Concomitant]
     Active Substance: PYRIMETHAMINE
     Indication: CEREBRAL TOXOPLASMOSIS
     Route: 048
     Dates: start: 20121229, end: 20130116
  5. FOLINIC ACID [Concomitant]
     Active Substance: LEUCOVORIN
     Indication: PRODUCT USED FOR UNKNOWN INDICATION
  6. DARUNAVIR [Suspect]
     Active Substance: DARUNAVIR
     Indication: ACQUIRED IMMUNODEFICIENCY SYNDROME
     Route: 048
     Dates: start: 20130108
  7. PYRIMETHAMINE [Concomitant]
     Active Substance: PYRIMETHAMINE
     Route: 048
     Dates: start: 20130201
  8. TRUVADA [Suspect]
     Active Substance: EMTRICITABINE\TENOFOVIR DISOPROXIL FUMARATE
     Indication: ACQUIRED IMMUNODEFICIENCY SYNDROME
     Route: 048
     Dates: start: 20130108, end: 20130206
  9. ADIAZINE [Suspect]
     Active Substance: SULFADIAZINE
     Indication: CEREBRAL TOXOPLASMOSIS
     Dosage: 12 TABLETS A DAY
     Route: 048
  10. TRUVADA [Suspect]
     Active Substance: EMTRICITABINE\TENOFOVIR DISOPROXIL FUMARATE
     Route: 048
     Dates: start: 20130206

REACTIONS (2)
  - Creatinine renal clearance decreased [Recovered/Resolved]
  - Renal failure [Recovered/Resolved]
